FAERS Safety Report 12325641 (Version 1)
Quarter: 2016Q2

REPORT INFORMATION
  Report Type: Spontaneous
  Country: US (occurrence: US)
  Receive Date: 20160503
  Receipt Date: 20160503
  Transmission Date: 20160815
  Serious: No
  Sender: FDA-Public Use
  Company Number: US-LUPIN PHARMACEUTICALS INC.-E2B_00003730

PATIENT
  Sex: Female

DRUGS (1)
  1. QUETIAPINE FUMARATE TABLETS 50 MG [Suspect]
     Active Substance: QUETIAPINE FUMARATE
     Indication: DEPRESSION

REACTIONS (2)
  - Myalgia [Not Recovered/Not Resolved]
  - Pain in extremity [Not Recovered/Not Resolved]
